FAERS Safety Report 12136739 (Version 1)
Quarter: 2016Q1

REPORT INFORMATION
  Report Type: Spontaneous
  Country: US (occurrence: US)
  Receive Date: 20160302
  Receipt Date: 20160302
  Transmission Date: 20160526
  Serious: No
  Sender: FDA-Public Use
  Company Number: US-GLAXOSMITHKLINE-US2016027824

PATIENT
  Sex: Male

DRUGS (2)
  1. TANZEUM [Suspect]
     Active Substance: ALBIGLUTIDE
     Indication: TYPE 2 DIABETES MELLITUS
     Dosage: 30 MG, WE
     Route: 058
     Dates: start: 20151223
  2. TANZEUM [Suspect]
     Active Substance: ALBIGLUTIDE

REACTIONS (13)
  - Mood altered [Unknown]
  - Diarrhoea [Unknown]
  - Rash macular [Not Recovered/Not Resolved]
  - Urticaria [Not Recovered/Not Resolved]
  - Erythema [Unknown]
  - Fatigue [Unknown]
  - Influenza like illness [Unknown]
  - Blood glucose decreased [Unknown]
  - Asthenia [Unknown]
  - Nausea [Unknown]
  - Anxiety [Unknown]
  - Blood glucose increased [Unknown]
  - Irritability [Unknown]

NARRATIVE: CASE EVENT DATE: 201512
